FAERS Safety Report 8092702-3 (Version None)
Quarter: 2012Q1

REPORT INFORMATION
  Report Type: 
  Country: None (occurrence: None)
  Receive Date: 20120130
  Receipt Date: 20120130
  Transmission Date: 20120608
  Serious: Yes (Hospitalization)
  Sender: FDA-Public Use
  Company Number: None

PATIENT
  Age: 71 Year
  Sex: Male
  Weight: 87.7 kg

DRUGS (2)
  1. OXYCODONE HCL [Suspect]
     Indication: PAIN
     Dosage: 5 MG PRN PO
     Route: 048
     Dates: start: 20120104, end: 20120117
  2. MORPHINE [Suspect]
     Indication: PAIN
     Dosage: 15 MG TID PO
     Route: 048
     Dates: start: 20120104, end: 20120117

REACTIONS (6)
  - HALLUCINATION [None]
  - MENTAL STATUS CHANGES [None]
  - CONFUSIONAL STATE [None]
  - MYOPIA [None]
  - CONSTIPATION [None]
  - DECREASED APPETITE [None]
